FAERS Safety Report 20034116 (Version 6)
Quarter: 2023Q4

REPORT INFORMATION
  Report Type: Spontaneous
  Country: US (occurrence: US)
  Receive Date: 20211104
  Receipt Date: 20231221
  Transmission Date: 20240109
  Serious: Yes (Other)
  Sender: FDA-Public Use
  Company Number: US-PFIZER INC-202101062219

PATIENT
  Age: 69 Year
  Sex: Female
  Weight: 88.526 kg

DRUGS (3)
  1. IBRANCE [Suspect]
     Active Substance: PALBOCICLIB
     Indication: Breast cancer stage IV
     Dosage: 125 MG ON DAYS 1-21 ON 28 DAY CYCLE
     Route: 048
     Dates: start: 20210727, end: 2021
  2. IBRANCE [Suspect]
     Active Substance: PALBOCICLIB
     Dosage: 125 MG ON DAYS 1-21 ON 28 DAY CYCLE
     Route: 048
     Dates: start: 20211226
  3. ARIMIDEX [Suspect]
     Active Substance: ANASTROZOLE
     Dosage: UNK

REACTIONS (6)
  - Coronary artery disease [Unknown]
  - Urticaria [Unknown]
  - Rash [Unknown]
  - Nausea [Unknown]
  - Headache [Unknown]
  - Hot flush [Not Recovered/Not Resolved]
